FAERS Safety Report 6460980-X (Version None)
Quarter: 2009Q4

REPORT INFORMATION
  Report Type: 
  Country: None (occurrence: None)
  Receive Date: 20091130
  Receipt Date: 20091118
  Transmission Date: 20100525
  Serious: Yes (Hospitalization)
  Sender: FDA-Public Use
  Company Number: A0817751A

PATIENT
  Age: 8 Year
  Sex: Male

DRUGS (1)
  1. DYNACIRC CR [Suspect]
     Indication: DRUG USE FOR UNKNOWN INDICATION
     Dosage: 20MG SINGLE DOSE
     Route: 048
     Dates: start: 20090929, end: 20090929

REACTIONS (2)
  - OVERDOSE [None]
  - VICTIM OF CRIME [None]
